FAERS Safety Report 18180218 (Version 38)
Quarter: 2024Q4

REPORT INFORMATION
  Report Type: Report from Study
  Country: US (occurrence: US)
  Receive Date: 20200821
  Receipt Date: 20241205
  Transmission Date: 20250115
  Serious: Yes (Other)
  Sender: TAKEDA
  Company Number: US-SHIRE-US202027092

PATIENT
  Age: 72 Year
  Sex: Female
  Weight: 47 kg

DRUGS (23)
  1. HUMAN IMMUNOGLOBULIN G [Suspect]
     Active Substance: HUMAN IMMUNOGLOBULIN G
     Indication: Immunodeficiency common variable
     Dosage: 10 GRAM, 1/WEEK
     Dates: start: 20140128
  2. HUMAN IMMUNOGLOBULIN G [Suspect]
     Active Substance: HUMAN IMMUNOGLOBULIN G
     Dosage: 10 GRAM, 1/WEEK
     Dates: start: 20160201
  3. HUMAN IMMUNOGLOBULIN G [Suspect]
     Active Substance: HUMAN IMMUNOGLOBULIN G
     Dosage: 10 GRAM, 1/WEEK
     Dates: start: 20160921
  4. HUMAN IMMUNOGLOBULIN G [Suspect]
     Active Substance: HUMAN IMMUNOGLOBULIN G
     Dosage: 10 GRAM, 1/WEEK
     Dates: start: 20160926
  5. HUMAN IMMUNOGLOBULIN G [Suspect]
     Active Substance: HUMAN IMMUNOGLOBULIN G
     Dosage: 8 GRAM, 1/WEEK
  6. HUMAN IMMUNOGLOBULIN G [Suspect]
     Active Substance: HUMAN IMMUNOGLOBULIN G
     Dosage: 10 GRAM, 1/WEEK
  7. HUMAN IMMUNOGLOBULIN G [Suspect]
     Active Substance: HUMAN IMMUNOGLOBULIN G
     Dosage: 10 GRAM, 1/WEEK
  8. BENADRYL [Suspect]
     Active Substance: DIPHENHYDRAMINE HYDROCHLORIDE
     Indication: Product used for unknown indication
     Dosage: UNK
  9. DIPHENHYDRAMINE [Suspect]
     Active Substance: DIPHENHYDRAMINE
     Indication: Product used for unknown indication
     Dosage: UNK
  10. EPINEPHRINE [Concomitant]
     Active Substance: EPINEPHRINE
     Dosage: UNK
  11. LEVOTHYROXINE SODIUM [Concomitant]
     Active Substance: LEVOTHYROXINE SODIUM
     Dosage: UNK
  12. PERCOCET [Concomitant]
     Active Substance: ACETAMINOPHEN\OXYCODONE HYDROCHLORIDE
     Dosage: UNK
  13. PROAIR HFA [Concomitant]
     Active Substance: ALBUTEROL SULFATE
     Dosage: UNK
  14. SODIUM CHLORIDE [Concomitant]
     Active Substance: SODIUM CHLORIDE
     Dosage: UNK
  15. ZOLPIDEM TARTRATE [Concomitant]
     Active Substance: ZOLPIDEM TARTRATE
     Dosage: UNK
  16. DIAZEPAM [Concomitant]
     Active Substance: DIAZEPAM
     Dosage: UNK
  17. DIPHENHYDRAMINE HYDROCHLORIDE [Concomitant]
     Active Substance: DIPHENHYDRAMINE HYDROCHLORIDE
     Dosage: UNK
  18. LIOTHYRONINE SODIUM [Concomitant]
     Active Substance: LIOTHYRONINE SODIUM
     Dosage: UNK
  19. CYTOMEL [Concomitant]
     Active Substance: LIOTHYRONINE SODIUM
     Dosage: UNK
  20. SODIUM CHLORIDE [Concomitant]
     Active Substance: SODIUM CHLORIDE
     Dosage: UNK
  21. PROVENTIL [Concomitant]
     Active Substance: ALBUTEROL
     Dosage: UNK
  22. LEVOXYL [Concomitant]
     Active Substance: LEVOTHYROXINE SODIUM
     Dosage: UNK
  23. CANNABIDIOL\HERBALS [Concomitant]
     Active Substance: CANNABIDIOL\HERBALS
     Dosage: UNK

REACTIONS (44)
  - Autoimmune disorder [Recovering/Resolving]
  - Allergy to chemicals [Unknown]
  - Allergic reaction to excipient [Unknown]
  - Smoke sensitivity [Unknown]
  - Device allergy [Unknown]
  - Thyroid disorder [Unknown]
  - Blood pressure decreased [Unknown]
  - Viral infection [Recovering/Resolving]
  - Poor venous access [Unknown]
  - Immunoglobulins increased [Unknown]
  - Gastrointestinal viral infection [Recovered/Resolved]
  - Thyroid hormones decreased [Unknown]
  - Gastroenteritis viral [Unknown]
  - Sinus congestion [Unknown]
  - Blood sodium decreased [Unknown]
  - Insurance issue [Unknown]
  - Illness [Recovering/Resolving]
  - Infection [Unknown]
  - Inappropriate schedule of product administration [Unknown]
  - Product dose omission issue [Unknown]
  - Road traffic accident [Unknown]
  - Head injury [Unknown]
  - Product use issue [Unknown]
  - Asthma [Unknown]
  - Feeling abnormal [Unknown]
  - Pain [Recovered/Resolved]
  - Influenza [Unknown]
  - Oropharyngeal pain [Unknown]
  - Insomnia [Unknown]
  - Infusion site extravasation [Unknown]
  - Wheezing [Unknown]
  - Malaise [Recovering/Resolving]
  - Asthenia [Unknown]
  - Hypotension [Unknown]
  - Vomiting [Unknown]
  - Dyspnoea [Recovered/Resolved]
  - Hypersensitivity [Unknown]
  - Infusion site pain [Unknown]
  - Diarrhoea [Unknown]
  - Headache [Recovered/Resolved]
  - Fatigue [Not Recovered/Not Resolved]
  - Chills [Recovering/Resolving]
  - Pyrexia [Recovered/Resolved]
  - Dizziness [Recovering/Resolving]

NARRATIVE: CASE EVENT DATE: 20230823
